FAERS Safety Report 10533444 (Version 4)
Quarter: 2014Q4

REPORT INFORMATION
  Report Type: Report from Study
  Country: NL (occurrence: NL)
  Receive Date: 20141022
  Receipt Date: 20141202
  Transmission Date: 20150529
  Serious: Yes (Other)
  Sender: FDA-Public Use
  Company Number: PHHO2014NL014107

PATIENT
  Age: 15 Year
  Sex: Female
  Weight: 53 kg

DRUGS (4)
  1. INDOMETHACIN. [Concomitant]
     Active Substance: INDOMETHACIN
     Indication: JUVENILE IDIOPATHIC ARTHRITIS
     Dosage: 25 MG, BID
     Route: 065
     Dates: start: 20121220, end: 20141020
  2. ACZ885 [Suspect]
     Active Substance: CANAKINUMAB
     Indication: JUVENILE IDIOPATHIC ARTHRITIS
     Dosage: 2 MG/KG
     Route: 058
     Dates: start: 20121001, end: 20140925
  3. ACZ885 [Suspect]
     Active Substance: CANAKINUMAB
     Dosage: 2 MG/KG
     Route: 058
     Dates: start: 20141024
  4. ESOMEPRAZOLE [Concomitant]
     Active Substance: ESOMEPRAZOLE
     Indication: PROPHYLAXIS
     Dosage: 10 MG, QD
     Route: 065
     Dates: start: 20131104, end: 20141020

REACTIONS (1)
  - Herpes zoster [Recovered/Resolved]

NARRATIVE: CASE EVENT DATE: 20141013
